FAERS Safety Report 5812524-0 (Version None)
Quarter: 2008Q3

REPORT INFORMATION
  Report Type: 
  Country: None (occurrence: None)
  Receive Date: 20080714
  Receipt Date: 20080714
  Transmission Date: 20090109
  Serious: Yes (Other)
  Sender: FDA-Public Use
  Company Number: None

PATIENT
  Sex: Female
  Weight: 13.3 kg

DRUGS (1)
  1. BOTOX [Suspect]
     Indication: MUSCLE SPASTICITY
     Dosage: 200 UNITS ONE SESSION IM, SINGLE DOSE
     Route: 030
     Dates: start: 20071207, end: 20071212

REACTIONS (14)
  - ASTHENIA [None]
  - BODY TEMPERATURE INCREASED [None]
  - CONDITION AGGRAVATED [None]
  - COUGH [None]
  - DROOLING [None]
  - DYSPHAGIA [None]
  - FATIGUE [None]
  - HYPOPHAGIA [None]
  - INSOMNIA [None]
  - IRRITABILITY [None]
  - MUSCLE TIGHTNESS [None]
  - MUSCULOSKELETAL STIFFNESS [None]
  - MYOCLONUS [None]
  - VOMITING [None]
